FAERS Safety Report 6524998-0 (Version None)
Quarter: 2009Q4

REPORT INFORMATION
  Report Type: 
  Country: None (occurrence: None)
  Receive Date: 20091231
  Receipt Date: 20091231
  Transmission Date: 20100525
  Serious: Yes (Life-Threatening, Other)
  Sender: FDA-Public Use
  Company Number: None

PATIENT
  Age: 56 Year
  Sex: Female

DRUGS (2)
  1. EFFEXOR XR [Suspect]
     Indication: ANXIETY
     Dosage: 150 MG ONCE A DAY
     Dates: start: 20050103, end: 20091226
  2. EFFEXOR XR [Suspect]
     Indication: DEPRESSION
     Dosage: 150 MG ONCE A DAY
     Dates: start: 20050103, end: 20091226

REACTIONS (14)
  - ANGER [None]
  - ASTHENIA [None]
  - DIARRHOEA [None]
  - DIZZINESS [None]
  - FEELING COLD [None]
  - HALLUCINATION [None]
  - HEPATOMEGALY [None]
  - HYPERHIDROSIS [None]
  - INSOMNIA [None]
  - NO THERAPEUTIC RESPONSE [None]
  - RASH [None]
  - TREMOR [None]
  - UNEVALUABLE EVENT [None]
  - VOMITING [None]
